FAERS Safety Report 16780717 (Version 2)
Quarter: 2019Q3

REPORT INFORMATION
  Report Type: Spontaneous
  Country: US (occurrence: US)
  Receive Date: 20190906
  Receipt Date: 20190925
  Transmission Date: 20191005
  Serious: No
  Sender: FDA-Public Use
  Company Number: US-ASTRAZENECA-2019SF15678

PATIENT
  Sex: Male
  Weight: 88.5 kg

DRUGS (2)
  1. BYDUREON [Suspect]
     Active Substance: EXENATIDE
     Indication: MONOGENIC DIABETES
     Route: 058
  2. BYDUREON BCISE [Suspect]
     Active Substance: EXENATIDE
     Indication: MONOGENIC DIABETES
     Route: 058

REACTIONS (3)
  - Wrong technique in product usage process [Unknown]
  - Product preparation issue [Unknown]
  - Circumstance or information capable of leading to medication error [Unknown]
